FAERS Safety Report 6013275-2 (Version None)
Quarter: 2008Q4

REPORT INFORMATION
  Report Type: 
  Country: None (occurrence: None)
  Receive Date: 20081212
  Receipt Date: 20080616
  Transmission Date: 20090506
  Serious: Yes (Other)
  Sender: FDA-Public Use
  Company Number: 570360

PATIENT
  Age: 58 Year
  Sex: Female

DRUGS (5)
  1. VALIUM [Suspect]
     Indication: DRUG USE FOR UNKNOWN INDICATION
     Dates: start: 19950101, end: 20080601
  2. DIAZEPAM [Suspect]
     Indication: DRUG USE FOR UNKNOWN INDICATION
     Dates: start: 20080601
  3. UNSPECIFIED DRUG (GENERIC UNKNOWN) [Concomitant]
  4. ACYCLOVIR [Concomitant]
  5. VICODIN [Concomitant]

REACTIONS (4)
  - ARTHRALGIA [None]
  - CONVULSION [None]
  - DRUG EFFECT DECREASED [None]
  - MUSCLE TWITCHING [None]
